FAERS Safety Report 6987796-X (Version None)
Quarter: 2010Q3

REPORT INFORMATION
  Report Type: 
  Country: None (occurrence: None)
  Receive Date: 20100830
  Receipt Date: 20100721
  Transmission Date: 20110219
  Serious: No
  Sender: FDA-Public Use
  Company Number: 2010S1000664

PATIENT
  Age: 50 Year
  Sex: Female

DRUGS (1)
  1. LIVALO [Suspect]
     Dates: start: 20100719

REACTIONS (1)
  - FATIGUE [None]
